FAERS Safety Report 7125611-4 (Version None)
Quarter: 2010Q4

REPORT INFORMATION
  Report Type: 
  Country: None (occurrence: None)
  Receive Date: 20101112
  Receipt Date: 20101102
  Transmission Date: 20110411
  Serious: Yes (Hospitalization)
  Sender: FDA-Public Use
  Company Number: 020249

PATIENT
  Sex: Female

DRUGS (11)
  1. VIMPAT [Suspect]
     Indication: NEURODEGENERATIVE DISORDER
     Dosage: (100 MG BID ORAL) ; (50 MG BID ORAL)
     Route: 048
     Dates: start: 20091101, end: 20100528
  2. VIMPAT [Suspect]
     Indication: OFF LABEL USE
     Dosage: (100 MG BID ORAL) ; (50 MG BID ORAL)
     Route: 048
     Dates: start: 20091101, end: 20100528
  3. VIMPAT [Suspect]
     Indication: NEURODEGENERATIVE DISORDER
     Dosage: (100 MG BID ORAL) ; (50 MG BID ORAL)
     Route: 048
     Dates: start: 20100705
  4. VIMPAT [Suspect]
     Indication: OFF LABEL USE
     Dosage: (100 MG BID ORAL) ; (50 MG BID ORAL)
     Route: 048
     Dates: start: 20100705
  5. NEURONTIN [Suspect]
     Indication: OPTIC NEUROPATHY
     Dosage: (800 MG BID ORAL)
     Route: 048
     Dates: start: 19960101
  6. EPITOMAX (EPITOMAX) [Suspect]
     Indication: OPTIC NEUROPATHY
     Dosage: (200 MG BID ORAL)
     Route: 048
     Dates: start: 20000101
  7. TEGRETOL [Suspect]
     Dosage: (ORAL)
     Route: 048
     Dates: start: 19960101, end: 20000101
  8. TEGELINE /00025201/ (TEGELINE) [Suspect]
     Dosage: (20 G, 10G / 200 ML INTRAVENOUS (NOT OTHERWISE SPECIFIED))
     Route: 042
     Dates: start: 20030101
  9. URBANYL [Concomitant]
  10. LAMICTAL [Concomitant]
  11. RIVOTRIL [Concomitant]

REACTIONS (1)
  - OPTIC NEUROPATHY [None]
